FAERS Safety Report 9218720 (Version 1)
Quarter: 2013Q2

REPORT INFORMATION
  Report Type: Spontaneous
  Country: US (occurrence: None)
  Receive Date: 20130405
  Receipt Date: 20130405
  Transmission Date: 20140414
  Serious: No
  Sender: FDA-Public Use
  Company Number: None

PATIENT
  Age: 70 Year
  Sex: Female
  Weight: 72.58 kg

DRUGS (2)
  1. CIPROFLOXACIN [Suspect]
     Route: 048
     Dates: start: 20120910, end: 20120920
  2. LEVOFLOXACIN [Suspect]
     Route: 048
     Dates: start: 20121112, end: 20121122

REACTIONS (2)
  - Vitreous haemorrhage [None]
  - Retinal tear [None]
